FAERS Safety Report 8478178-2 (Version None)
Quarter: 2012Q2

REPORT INFORMATION
  Report Type: 
  Country: None (occurrence: None)
  Receive Date: 20120629
  Receipt Date: 20120626
  Transmission Date: 20120825
  Serious: Yes (Death)
  Sender: FDA-Public Use
  Company Number: PHHY2012MX054982

PATIENT
  Age: 18 Year
  Sex: Female

DRUGS (1)
  1. AFINITOR [Suspect]
     Indication: NEUROENDOCRINE TUMOUR

REACTIONS (1)
  - DEATH [None]
